FAERS Safety Report 8613486-3 (Version None)
Quarter: 2012Q3

REPORT INFORMATION
  Report Type: 
  Country: None (occurrence: None)
  Receive Date: 20120823
  Receipt Date: 20120809
  Transmission Date: 20120928
  Serious: Yes (Hospitalization)
  Sender: FDA-Public Use
  Company Number: GB-MYLANLABS-2012S1016652

PATIENT
  Age: 7 Decade
  Sex: Male

DRUGS (3)
  1. OXALIPLATIN [Suspect]
     Indication: COLORECTAL CANCER METASTATIC
     Dosage: 9 CYCLES WITH 5-FU; THEN 3 CYCLES WITH 5-FU; THEN 6 CYCLES WITH 5-FU, IRINOTECAN
     Route: 065
  2. FLUOROURACIL [Suspect]
     Indication: COLORECTAL CANCER METASTATIC
     Dosage: 9 CYCLES WITH OXALIPLATIN; THEN 3 CYCLES WITH OXALIPLATIN; THEN 6 CYCLE WITH OXALIPLATIN, IRINOTECAN
     Route: 065
  3. IRINOTECAN HYDROCHLORIDE [Suspect]
     Indication: COLORECTAL CANCER METASTATIC
     Dosage: 6 CYCLES WITH OXALIPLATIN, FLUOROURACIL
     Route: 065

REACTIONS (4)
  - PORTAL HYPERTENSION [None]
  - BONE MARROW FAILURE [None]
  - THROMBOCYTOPENIA [None]
  - POST PROCEDURAL HAEMORRHAGE [None]
